FAERS Safety Report 17256925 (Version 1)
Quarter: 2020Q1

REPORT INFORMATION
  Report Type: Spontaneous
  Country: US (occurrence: US)
  Receive Date: 20200110
  Receipt Date: 20200110
  Transmission Date: 20200409
  Serious: No
  Sender: FDA-Public Use
  Company Number: US-ASTRAZENECA-2019SF82974

PATIENT
  Age: 2663 Week
  Sex: Female

DRUGS (1)
  1. FASENRA [Suspect]
     Active Substance: BENRALIZUMAB
     Route: 058
     Dates: start: 20191023, end: 20191122

REACTIONS (2)
  - Nausea [Unknown]
  - Migraine [Unknown]

NARRATIVE: CASE EVENT DATE: 20191023
